FAERS Safety Report 13381063 (Version 1)
Quarter: 2017Q1

REPORT INFORMATION
  Report Type: Spontaneous
  Country: US (occurrence: US)
  Receive Date: 20170329
  Receipt Date: 20170329
  Transmission Date: 20170429
  Serious: No
  Sender: FDA-Public Use
  Company Number: US-PFIZER INC-2017132411

PATIENT

DRUGS (1)
  1. EUCRISA [Suspect]
     Active Substance: CRISABOROLE
     Dosage: 2X/DAY (WITHIN A DAY OR TWO OF TWICE DAILY APPLICATION)

REACTIONS (2)
  - Burning sensation [Recovered/Resolved]
  - Pain [Recovered/Resolved]
